APPROVED DRUG PRODUCT: UREX
Active Ingredient: METHENAMINE HIPPURATE
Strength: 1GM
Dosage Form/Route: TABLET;ORAL
Application: N016151 | Product #001 | TE Code: AB
Applicant: QUAGEN PHARMACEUTICALS LLC
Approved: Approved Prior to Jan 1, 1982 | RLD: No | RS: No | Type: RX